FAERS Safety Report 6045434-7 (Version None)
Quarter: 2009Q1

REPORT INFORMATION
  Report Type: 
  Country: None (occurrence: None)
  Receive Date: 20090116
  Receipt Date: 20090116
  Transmission Date: 20090719
  Serious: No
  Sender: FDA-Public Use
  Company Number: None

PATIENT
  Age: 30 Year
  Sex: Female

DRUGS (2)
  1. PROGESTERONE [Suspect]
     Dosage: 50 MG     ONCE A DAY 5 OR MORE INJECTIONS
     Dates: start: 20081225
  2. ESTROGEN TABLETS [Concomitant]

REACTIONS (17)
  - ARTHROPOD BITE [None]
  - AURICULAR SWELLING [None]
  - DRUG EXPOSURE DURING PREGNANCY [None]
  - EAR DISORDER [None]
  - ERYTHEMA [None]
  - EYE PRURITUS [None]
  - EYE SWELLING [None]
  - LIP SWELLING [None]
  - NASAL DISORDER [None]
  - NO REACTION ON PREVIOUS EXPOSURE TO DRUG [None]
  - OEDEMA PERIPHERAL [None]
  - ORAL PRURITUS [None]
  - PRODUCT QUALITY ISSUE [None]
  - PRURITUS [None]
  - SKIN DISCOLOURATION [None]
  - SWELLING [None]
  - SWELLING FACE [None]
